FAERS Safety Report 26117944 (Version 1)
Quarter: 2025Q4

REPORT INFORMATION
  Report Type: Spontaneous
  Country: US (occurrence: None)
  Receive Date: 20251203
  Receipt Date: 20251203
  Transmission Date: 20260118
  Serious: Yes (Other)
  Sender: FDA-CTU
  Company Number: None

PATIENT
  Sex: Female

DRUGS (1)
  1. XOLAIR [Suspect]
     Active Substance: OMALIZUMAB
     Indication: Idiopathic urticaria
     Dosage: INJECT 1 (ONE) AUTO-INJECTOR UNDER THE SKIN (SUBCUTANEOUS INJECTION), INTO OUTER ARM, STOMACH, OR THIGH EVERY 4 WEEKS?
     Route: 006
     Dates: start: 20251113

REACTIONS (24)
  - Rhinorrhoea [None]
  - Toothache [None]
  - Blood pressure increased [None]
  - Cardiac disorder [None]
  - Hernia [None]
  - Aneurysm [None]
  - Thyroid mass [None]
  - Breast cyst [None]
  - Breast mass [None]
  - Dry skin [None]
  - Multiple allergies [None]
  - Asthma [None]
  - Eye discharge [None]
  - Ear pain [None]
  - Systemic lupus erythematosus [None]
  - Anxiety [None]
  - Depression [None]
  - Tooth loss [None]
  - Temporomandibular pain and dysfunction syndrome [None]
  - Fibromyalgia [None]
  - Nasal septum deviation [None]
  - Tendonitis [None]
  - Nasal polyps [None]
  - Impaired quality of life [None]
